FAERS Safety Report 4861454-X (Version None)
Quarter: 2005Q4

REPORT INFORMATION
  Report Type: 
  Country: None (occurrence: None)
  Receive Date: 20051220
  Receipt Date: 20051209
  Transmission Date: 20060501
  Serious: Yes (Other)
  Sender: FDA-Public Use
  Company Number: CA-BRISTOL-MYERS SQUIBB COMPANY-13219795

PATIENT
  Age: 84 Year
  Sex: Female

DRUGS (15)
  1. GATIFLOXACIN [Suspect]
     Route: 048
  2. GLYBURIDE [Interacting]
     Route: 048
  3. ACETAMINOPHEN [Concomitant]
  4. ALENDRONATE SODIUM [Concomitant]
  5. CALCIUM GLUCONATE [Concomitant]
  6. FLUTICASONE [Concomitant]
  7. IRON SULFATETHIAMIN COMPOUND TAB [Concomitant]
  8. LEVOTHYROXINE SODIUM [Concomitant]
  9. LIPITOR [Concomitant]
  10. METFORMIN HCL [Concomitant]
  11. MIACALCIN [Concomitant]
  12. OMEPRAZOLE [Concomitant]
  13. RAMIPRIL [Concomitant]
  14. VITAMIN D [Concomitant]
  15. WARFARIN [Concomitant]

REACTIONS (4)
  - CONFUSIONAL STATE [None]
  - DRUG INTERACTION [None]
  - HYPOGLYCAEMIA [None]
  - PROTHROMBIN LEVEL DECREASED [None]
